FAERS Safety Report 8554099-1 (Version None)
Quarter: 2012Q3

REPORT INFORMATION
  Report Type: 
  Country: None (occurrence: None)
  Receive Date: 20120731
  Receipt Date: 20120723
  Transmission Date: 20120928
  Serious: Yes (Other)
  Sender: FDA-Public Use
  Company Number: PHHY2012FR064422

PATIENT
  Sex: Female

DRUGS (26)
  1. CELLCEPT [Suspect]
     Dosage: 1.5 G, BID (MORNING AND EVENING)
     Route: 048
     Dates: start: 20110829
  2. PRAVASTATIN [Concomitant]
     Dosage: 20 MG, DAILY
  3. FOLIC ACID [Concomitant]
     Indication: FOLATE DEFICIENCY
     Dosage: 5 MG, DAILY
  4. ARANESP [Concomitant]
  5. FERROUS FUMARATE [Concomitant]
     Dosage: 2 DF, DAILY
  6. AMLODIPINE BESYLATE [Concomitant]
  7. THYMOGLOBULIN [Concomitant]
  8. FUNGIZONE [Concomitant]
  9. CERTICAN [Suspect]
     Indication: IMMUNOSUPPRESSION
     Route: 048
     Dates: start: 20110509
  10. CERTICAN [Suspect]
     Dosage: (0.5 MG IN THE MORNING AND 0.25 MG IN THE EVENING)
     Route: 048
     Dates: start: 20110718
  11. CELLCEPT [Suspect]
     Dosage: 1750 MG, BID (MORNING AND EVENING)
     Route: 048
     Dates: start: 20110720
  12. CORTICOSTEROIDS [Concomitant]
  13. ASPIRIN [Concomitant]
     Dosage: 75 MG, DAILY
  14. NEORAL [Suspect]
     Dosage: (100 MG IN MORNING AND 75 MG IN EVENING)
  15. CELLCEPT [Suspect]
     Indication: IMMUNOSUPPRESSION
     Route: 048
     Dates: start: 20110408
  16. VALGANCICLOVIR [Suspect]
     Indication: CYTOMEGALOVIRUS INFECTION
     Dates: start: 20110408, end: 20120111
  17. PREDNISOLONE [Concomitant]
     Dosage: 20 MG, MORNING
  18. ESOMEPRAZOLE [Concomitant]
     Dosage: 20 MG, DAILY
  19. CERTICAN [Suspect]
     Dosage: 0.5 MG, BID
     Route: 048
     Dates: start: 20120111
  20. CERTICAN [Suspect]
     Dosage: 0.25 MG, BID
     Route: 048
     Dates: start: 20110620
  21. NEORAL [Suspect]
     Dosage: 50 MG, BID
  22. BACTRIM DS [Suspect]
     Indication: INFECTION IN AN IMMUNOCOMPROMISED HOST
     Dosage: UNK UKN, UNK
     Route: 048
     Dates: start: 20110408, end: 20110829
  23. PROGRAF [Concomitant]
  24. SPORANOX [Concomitant]
     Dosage: 5 DF, DAILY
  25. RAMIPRIL [Concomitant]
     Dosage: 10 MG, DAILY
  26. BACTRIM [Concomitant]

REACTIONS (6)
  - ASTHENIA [None]
  - ANAEMIA MACROCYTIC [None]
  - IMMUNOSUPPRESSANT DRUG LEVEL INCREASED [None]
  - LEUKOPENIA [None]
  - HYPOTENSION [None]
  - OEDEMA [None]
